FAERS Safety Report 5699638-3 (Version None)
Quarter: 2008Q2

REPORT INFORMATION
  Report Type: 
  Country: None (occurrence: None)
  Receive Date: 20080410
  Receipt Date: 20080401
  Transmission Date: 20081010
  Serious: Yes (Hospitalization)
  Sender: FDA-Public Use
  Company Number: PHBS2008IT03680

PATIENT
  Age: 82 Year
  Sex: Female

DRUGS (5)
  1. VOLTFAST [Suspect]
     Indication: ARTHRALGIA
     Dosage: 50 MG, QD
     Route: 048
     Dates: start: 20080227, end: 20080227
  2. TRIATEC [Concomitant]
     Dosage: 10 MG, UNK
     Route: 048
  3. LOMUDAL [Concomitant]
     Dosage: 20 MG/2ML
  4. BREVA [Concomitant]
  5. CLENIL [Concomitant]
     Dosage: 1 ML, UNK

REACTIONS (4)
  - DYSPNOEA [None]
  - LEUKOCYTOSIS [None]
  - MALAISE [None]
  - PRESYNCOPE [None]
